FAERS Safety Report 7893054-1 (Version None)
Quarter: 2011Q4

REPORT INFORMATION
  Report Type: 
  Country: None (occurrence: None)
  Receive Date: 20111104
  Receipt Date: 20110908
  Transmission Date: 20120403
  Serious: No
  Sender: FDA-Public Use
  Company Number: US-GLAXOSMITHKLINE-A0943908A

PATIENT
  Age: 68 Year
  Sex: Female

DRUGS (4)
  1. HORIZANT [Suspect]
     Indication: RESTLESS LEGS SYNDROME
     Dosage: 600MG PER DAY
     Route: 048
     Dates: start: 20110907
  2. TRAMADOL HCL [Concomitant]
  3. REQUIP [Suspect]
     Indication: RESTLESS LEGS SYNDROME
     Dosage: 3TAB PER DAY
     Route: 048
     Dates: end: 20110101
  4. TRAZODONE HYDROCHLORIDE [Concomitant]

REACTIONS (2)
  - OBSESSIVE-COMPULSIVE DISORDER [None]
  - HYPERSOMNIA [None]
